FAERS Safety Report 8919992 (Version 1)
Quarter: 2012Q4

REPORT INFORMATION
  Report Type: 
  Country: BE (occurrence: BE)
  Receive Date: 20121121
  Receipt Date: 20121121
  Transmission Date: 20130627
  Serious: Yes (Other)
  Sender: FDA-Public Use
  Company Number: BE-MYLANLABS-2012S1023573

PATIENT
  Age: 45 Year
  Sex: Female

DRUGS (2)
  1. NATALIZUMAB [Suspect]
     Dosage: DF = infusions
     Route: 065
  2. MITOXANTRONE [Suspect]
     Route: 065

REACTIONS (1)
  - Progressive multifocal leukoencephalopathy [Unknown]
